FAERS Safety Report 6376012-8 (Version None)
Quarter: 2009Q3

REPORT INFORMATION
  Report Type: 
  Country: None (occurrence: None)
  Receive Date: 20090924
  Receipt Date: 20090911
  Transmission Date: 20100115
  Serious: Yes (Other)
  Sender: FDA-Public Use
  Company Number: PHHY2009BR39233

PATIENT
  Age: 84 Year
  Sex: Female
  Weight: 74 kg

DRUGS (3)
  1. DIOCOMB SI [Suspect]
     Indication: DIABETES MELLITUS
     Dosage: 1 TABLET WITH EACH ACTIVE COMPOUND IN THE MORNING AND NIGHT
  2. GALVUS MET COMBIPACK [Suspect]
     Indication: DIABETES MELLITUS
     Dosage: 1DF (500/50 MG) TABLET WITH EACH ACTIVE COMPOUND IN THE MORNING AND NIGHT
     Route: 048
  3. GALVUS MET COMBIPACK [Suspect]
     Dosage: 1DF (850/50 MG) TABLET WITH EACH ACTIVE COMPOUND IN THE MORNING AND NIGHT
     Route: 048

REACTIONS (4)
  - BACK PAIN [None]
  - BONE PAIN [None]
  - GAIT DISTURBANCE [None]
  - HYPOAESTHESIA [None]
